FAERS Safety Report 15057422 (Version 1)
Quarter: 2018Q2

REPORT INFORMATION
  Report Type: Spontaneous
  Country: US (occurrence: US)
  Receive Date: 20180625
  Receipt Date: 20180625
  Transmission Date: 20180711
  Serious: Yes (Life-Threatening, Hospitalization)
  Sender: FDA-Public Use
  Company Number: US-INDICUS PHARMA-000542

PATIENT
  Age: 22 Year
  Sex: Female

DRUGS (1)
  1. METFORMIN [Suspect]
     Active Substance: METFORMIN HYDROCHLORIDE

REACTIONS (19)
  - Lactic acidosis [Not Recovered/Not Resolved]
  - Hyperglycaemia [Unknown]
  - Delirium [Recovered/Resolved]
  - Flushing [Unknown]
  - Electrocardiogram QT prolonged [Unknown]
  - Hypotension [Unknown]
  - Intentional overdose [Unknown]
  - Mydriasis [Unknown]
  - Shock [Unknown]
  - Metabolic acidosis [Unknown]
  - Hypothermia [Unknown]
  - Anhidrosis [Unknown]
  - Hypertension [Unknown]
  - Blood creatinine increased [Unknown]
  - Multiple organ dysfunction syndrome [Unknown]
  - Hypopnoea [Unknown]
  - Electrocardiogram QRS complex prolonged [Unknown]
  - Gastrointestinal sounds abnormal [Unknown]
  - Hypoglycaemia [Unknown]
